FAERS Safety Report 8468188-3 (Version None)
Quarter: 2012Q2

REPORT INFORMATION
  Report Type: 
  Country: None (occurrence: None)
  Receive Date: 20120626
  Receipt Date: 20120615
  Transmission Date: 20120825
  Serious: Yes (Life-Threatening, Other)
  Sender: FDA-Public Use
  Company Number: TN-ROCHE-1078840

PATIENT
  Sex: Female
  Weight: 65 kg

DRUGS (2)
  1. PEGASYS [Suspect]
     Indication: HEPATITIS C
     Route: 058
     Dates: start: 20100816, end: 20110822
  2. COPEGUS [Suspect]
     Indication: HEPATITIS C
     Route: 048
     Dates: start: 20100816, end: 20110822

REACTIONS (2)
  - HEPATIC NEOPLASM MALIGNANT [None]
  - HEPATITIS C [None]
